FAERS Safety Report 17566878 (Version 2)
Quarter: 2020Q2

REPORT INFORMATION
  Report Type: Spontaneous
  Country: FR (occurrence: FR)
  Receive Date: 20200320
  Receipt Date: 20200510
  Transmission Date: 20200713
  Serious: Yes (Other)
  Sender: FDA-Public Use
  Company Number: FR-TEVA-2020-FR-1205404

PATIENT
  Sex: Male

DRUGS (3)
  1. OCTREOTIDE TEVA LP 30 MG [Suspect]
     Active Substance: OCTREOTIDE
     Indication: PRODUCT USED FOR UNKNOWN INDICATION
     Route: 030
     Dates: start: 20200210
  2. TANGANIL [Concomitant]
     Active Substance: ACETYLLEUCINE
  3. DOLIPRANE [Concomitant]
     Active Substance: ACETAMINOPHEN

REACTIONS (7)
  - Haematoma [Recovered/Resolved with Sequelae]
  - Injection site pain [Recovered/Resolved with Sequelae]
  - Injection site erythema [Recovered/Resolved with Sequelae]
  - Adverse event [Recovered/Resolved with Sequelae]
  - Hypoaesthesia [Recovered/Resolved with Sequelae]
  - Injection site swelling [Recovered/Resolved with Sequelae]
  - Monoplegia [Recovered/Resolved with Sequelae]
